FAERS Safety Report 8447283 (Version 5)
Quarter: 2012Q4

REPORT INFORMATION
  Report Type: Report from Study
  Country: JP (occurrence: JP)
  Receive Date: 20120308
  Receipt Date: 20121206
  Transmission Date: 20130627
  Serious: Yes (Hospitalization)
  Sender: FDA-Public Use
  Company Number: JP-JNJFOC-20120212450

PATIENT
  Age: 74 Year
  Sex: Female
  Weight: 51 kg

DRUGS (29)
  1. SIMPONI [Suspect]
     Indication: RHEUMATOID ARTHRITIS
     Route: 058
     Dates: start: 20120528
  2. SIMPONI [Suspect]
     Indication: RHEUMATOID ARTHRITIS
     Route: 058
     Dates: start: 20120626
  3. SIMPONI [Suspect]
     Indication: RHEUMATOID ARTHRITIS
     Route: 058
     Dates: start: 20120113
  4. SIMPONI [Suspect]
     Indication: RHEUMATOID ARTHRITIS
     Route: 058
     Dates: start: 20120403
  5. SIMPONI [Suspect]
     Indication: RHEUMATOID ARTHRITIS
     Route: 058
     Dates: start: 20120306
  6. SIMPONI [Suspect]
     Indication: RHEUMATOID ARTHRITIS
     Route: 058
     Dates: start: 20120207
  7. SIMPONI [Suspect]
     Indication: RHEUMATOID ARTHRITIS
     Route: 058
     Dates: start: 20120501
  8. TACROLIMUS HYDRATE [Suspect]
     Indication: RHEUMATOID LUNG
     Dates: start: 20120403, end: 20120501
  9. TACROLIMUS HYDRATE [Suspect]
     Indication: RHEUMATOID LUNG
     Dates: start: 20120502
  10. MAGMITT [Concomitant]
     Indication: CONSTIPATION
     Route: 048
  11. PREDNISOLONE [Concomitant]
     Indication: RHEUMATOID ARTHRITIS
     Route: 048
     Dates: start: 20120211
  12. PREDNISOLONE [Concomitant]
     Indication: RHEUMATOID ARTHRITIS
     Route: 048
     Dates: start: 20120107, end: 20120210
  13. INDOMETHACIN [Concomitant]
     Indication: RHEUMATOID ARTHRITIS
     Route: 048
  14. PARIET [Concomitant]
     Indication: PROPHYLAXIS
     Route: 048
  15. NEUROTROPIN [Concomitant]
     Indication: RHEUMATOID ARTHRITIS
  16. GLAKAY [Concomitant]
     Indication: PROPHYLAXIS
     Route: 048
  17. ONEALFA [Concomitant]
     Indication: PROPHYLAXIS
     Route: 048
  18. ENTERONON-R [Concomitant]
     Indication: PROPHYLAXIS
     Route: 048
  19. LASIX [Concomitant]
  20. HOCHU-EKKI-TO [Concomitant]
     Indication: PROPHYLAXIS
     Route: 048
  21. BAKTAR [Concomitant]
     Indication: PROPHYLAXIS
     Route: 048
  22. FUNGIZONE [Concomitant]
     Indication: PROPHYLAXIS
     Route: 049
  23. ISODINE [Concomitant]
     Indication: PROPHYLAXIS
     Route: 049
  24. TRACLEER [Concomitant]
     Indication: RAYNAUD^S PHENOMENON
     Route: 048
  25. DUROTEP [Concomitant]
     Indication: RHEUMATOID ARTHRITIS
     Route: 062
     Dates: start: 20110309
  26. URSO [Concomitant]
     Indication: LIVER DISORDER
     Route: 048
  27. THYRADIN [Concomitant]
     Indication: HYPOTHYROIDISM
     Route: 048
  28. EDIROL [Concomitant]
     Indication: PROPHYLAXIS
     Route: 048
  29. PRIMPERAN [Concomitant]

REACTIONS (8)
  - Femoral neck fracture [Recovering/Resolving]
  - Fall [Recovering/Resolving]
  - Post procedural haematoma [Recovering/Resolving]
  - Rheumatoid lung [Recovering/Resolving]
  - Nausea [Recovered/Resolved]
  - Liver disorder [Recovering/Resolving]
  - Hypothyroidism [Recovering/Resolving]
  - Platelet count decreased [Recovering/Resolving]
